FAERS Safety Report 9605351 (Version 2)
Quarter: 2013Q4

REPORT INFORMATION
  Report Type: Spontaneous
  Country: GB (occurrence: GB)
  Receive Date: 20131008
  Receipt Date: 20131008
  Transmission Date: 20140711
  Serious: Yes (Hospitalization)
  Sender: FDA-Public Use
  Company Number: GB-ACTAVIS-2012-15572

PATIENT
  Age: 85 Year
  Sex: Male
  Weight: 59 kg

DRUGS (4)
  1. DONEPEZIL (UNKNOWN) [Suspect]
     Indication: DEMENTIA
     Dosage: 10 MG, DAILY
     Route: 048
     Dates: start: 201110, end: 20120817
  2. SIMVASTATIN [Concomitant]
     Indication: HYPERCHOLESTEROLAEMIA
     Dosage: 40 MG, DAILY, ONE TO BE TAKEN AT NIGHT
     Route: 048
  3. OXYBUTYNIN [Concomitant]
     Indication: INCONTINENCE
     Dosage: 5 MG, DAILY
     Route: 048
  4. OXYBUTYNIN [Concomitant]
     Dosage: TREATMENT CONTINUED.
     Route: 048

REACTIONS (2)
  - Bradycardia [Recovered/Resolved]
  - Fall [Recovered/Resolved]
